FAERS Safety Report 8620033-9 (Version None)
Quarter: 2012Q3

REPORT INFORMATION
  Report Type: 
  Country: None (occurrence: None)
  Receive Date: 20120824
  Receipt Date: 20120821
  Transmission Date: 20120928
  Serious: Yes (Life-Threatening, Hospitalization)
  Sender: FDA-Public Use
  Company Number: PHHY2012BR072362

PATIENT
  Sex: Female
  Weight: 50 kg

DRUGS (4)
  1. EXELON [Suspect]
     Dosage: 9.5 MG DAILY
     Route: 062
  2. PROLOPA [Concomitant]
     Indication: PARKINSON'S DISEASE
     Dosage: HALF TABLET DAILY
     Dates: start: 20120820
  3. EXELON [Suspect]
     Indication: MEMORY IMPAIRMENT
     Dosage: 4.6 MG DAILY
     Route: 062
  4. SIMVASTATIN [Concomitant]
     Indication: BLOOD CHOLESTEROL INCREASED
     Dosage: 1 DF DAILY

REACTIONS (8)
  - MULTIPLE FRACTURES [None]
  - INJURY [None]
  - ROAD TRAFFIC ACCIDENT [None]
  - CARDIO-RESPIRATORY ARREST [None]
  - HAEMORRHAGE [None]
  - BLOOD COUNT ABNORMAL [None]
  - PELVIC FRACTURE [None]
  - DRUG INEFFECTIVE [None]
